FAERS Safety Report 13151930 (Version 2)
Quarter: 2017Q1

REPORT INFORMATION
  Report Type: Spontaneous
  Country: SE (occurrence: SE)
  Receive Date: 20170125
  Receipt Date: 20170321
  Transmission Date: 20170428
  Serious: Yes (Hospitalization, Other)
  Sender: FDA-Public Use
  Company Number: SE-BRISTOL-MYERS SQUIBB COMPANY-BMS-2017-004834

PATIENT
  Age: 55 Year
  Sex: Male

DRUGS (1)
  1. ELIQUIS [Suspect]
     Active Substance: APIXABAN
     Indication: CEREBROVASCULAR ACCIDENT PROPHYLAXIS
     Dosage: 2.5 MG, BID
     Route: 065
     Dates: start: 20161017

REACTIONS (4)
  - Malaise [Unknown]
  - Cardiac arrest [Not Recovered/Not Resolved]
  - Cardiac disorder [Unknown]
  - Contusion [Not Recovered/Not Resolved]

NARRATIVE: CASE EVENT DATE: 20161230
